FAERS Safety Report 7410884-0 (Version None)
Quarter: 2011Q2

REPORT INFORMATION
  Report Type: 
  Country: None (occurrence: None)
  Receive Date: 20110413
  Receipt Date: 20110407
  Transmission Date: 20111010
  Serious: No
  Sender: FDA-Public Use
  Company Number: US-PFIZER INC-2011077482

PATIENT
  Sex: Female
  Weight: 107 kg

DRUGS (4)
  1. OMEPRAZOLE [Concomitant]
     Indication: COLOSTOMY
  2. ALPRAZOLAM [Suspect]
     Indication: ANXIETY
     Dosage: 0.5 MG TABLET, TWO IN THE MORNING ONE IN THE AFTERNOON AND TWO AT NIGHT
     Route: 048
     Dates: start: 20110301
  3. OMEPRAZOLE [Concomitant]
     Indication: GASTROOESOPHAGEAL REFLUX DISEASE
     Dosage: 20 MG, 1X/DAY
  4. EMSAM [Concomitant]
     Indication: DEPRESSION
     Dosage: UNK
     Route: 062

REACTIONS (6)
  - IRRITABILITY [None]
  - ANXIETY [None]
  - WEIGHT INCREASED [None]
  - DEPRESSED MOOD [None]
  - DRUG INEFFECTIVE [None]
  - CRYING [None]
